FAERS Safety Report 17934044 (Version 1)
Quarter: 2020Q2

REPORT INFORMATION
  Report Type: Spontaneous
  Country: IT (occurrence: IT)
  Receive Date: 20200624
  Receipt Date: 20200624
  Transmission Date: 20200714
  Serious: Yes (Disabling, Other)
  Sender: FDA-Public Use
  Company Number: IT-AUROBINDO-AUR-APL-2020-030119

PATIENT
  Age: 12 Year
  Sex: Male

DRUGS (3)
  1. ARIPIPRAZOLE. [Suspect]
     Active Substance: ARIPIPRAZOLE
     Indication: EMOTIONAL DISORDER OF CHILDHOOD
     Dosage: 2.5 MILLIGRAM, ONCE A DAY
     Route: 065
  2. LAMOTRIGINE. [Concomitant]
     Active Substance: LAMOTRIGINE
     Indication: EMOTIONAL DISORDER OF CHILDHOOD
     Dosage: 100 MILLIGRAM, ONCE A DAY (TITRATED UP TO 100MG/D)
     Route: 065
  3. ARIPIPRAZOLE. [Suspect]
     Active Substance: ARIPIPRAZOLE
     Dosage: 1.5 MILLIGRAM, ONCE A DAY
     Route: 065

REACTIONS (4)
  - Disease recurrence [Recovered/Resolved]
  - Off label use [Recovered/Resolved]
  - Therapeutic product effective for unapproved indication [Recovered/Resolved]
  - Product administration interrupted [Recovered/Resolved]
